FAERS Safety Report 7683269-X (Version None)
Quarter: 2011Q3

REPORT INFORMATION
  Report Type: 
  Country: None (occurrence: None)
  Receive Date: 20110815
  Receipt Date: 20110727
  Transmission Date: 20111222
  Serious: Yes (Hospitalization)
  Sender: FDA-Public Use
  Company Number: US-GLAXOSMITHKLINE-A0839561A

PATIENT
  Age: 59 Year
  Sex: Female

DRUGS (1)
  1. AVANDIA [Suspect]
     Indication: TYPE 2 DIABETES MELLITUS
     Dosage: 8MG PER DAY
     Route: 048
     Dates: start: 19990501

REACTIONS (5)
  - HYPERKALAEMIA [None]
  - HYPOGLYCAEMIA [None]
  - MYOCARDIAL INFARCTION [None]
  - CARDIAC DISORDER [None]
  - PALPITATIONS [None]
